FAERS Safety Report 20479521 (Version 1)
Quarter: 2022Q1

REPORT INFORMATION
  Report Type: Spontaneous
  Country: BE (occurrence: BE)
  Receive Date: 20220216
  Receipt Date: 20220216
  Transmission Date: 20220423
  Serious: Yes (Other)
  Sender: FDA-Public Use
  Company Number: BE-AMGEN-BELSP2022006417

PATIENT
  Age: 40 Year
  Sex: Male

DRUGS (3)
  1. FLUOROURACIL [Suspect]
     Active Substance: FLUOROURACIL
     Indication: Colorectal cancer stage II
  2. OXALIPLATIN [Concomitant]
     Active Substance: OXALIPLATIN
     Indication: Adenocarcinoma of colon
  3. LEUCOVORIN [Concomitant]
     Active Substance: LEUCOVORIN
     Indication: Adenocarcinoma of colon

REACTIONS (1)
  - Cardiomyopathy [Recovered/Resolved]
